FAERS Safety Report 8938382 (Version 2)
Quarter: 2012Q4

REPORT INFORMATION
  Report Type: 
  Country: US (occurrence: US)
  Receive Date: 20121126
  Receipt Date: 20121212
  Transmission Date: 20130627
  Serious: Yes (Death, Hospitalization)
  Sender: FDA-Public Use
  Company Number: US-ASTELLAS-1109319

PATIENT
  Sex: Female

DRUGS (10)
  1. TARCEVA [Suspect]
     Indication: LUNG NEOPLASM MALIGNANT
     Route: 048
  2. LOMOTIL [Concomitant]
     Route: 048
  3. ATIVAN [Concomitant]
     Route: 065
  4. DUONEB [Concomitant]
     Route: 042
  5. DUONEB [Concomitant]
     Route: 065
  6. MAGIC MOUTHWASH (BENADRYL) [Concomitant]
  7. MAALOX (CALCIUM CARBONATE) [Concomitant]
  8. BENADRYL [Concomitant]
  9. VISCOUS LIDOCAINE [Concomitant]
     Route: 065
  10. ZOFRAN [Concomitant]
     Route: 042

REACTIONS (9)
  - Decreased appetite [Unknown]
  - Nausea [Unknown]
  - Diarrhoea [Unknown]
  - Dizziness [Unknown]
  - Fatigue [Unknown]
  - Rash [Unknown]
  - Vomiting [Unknown]
  - Acne [Unknown]
  - Death [Fatal]
